FAERS Safety Report 4492006-1 (Version None)
Quarter: 2004Q4

REPORT INFORMATION
  Report Type: 
  Country: None (occurrence: None)
  Receive Date: 20041101
  Receipt Date: 20041026
  Transmission Date: 20050328
  Serious: Yes (Hospitalization)
  Sender: FDA-Public Use
  Company Number: 040818-0000411

PATIENT
  Age: 51 Year
  Sex: Female
  Weight: 58.9676 kg

DRUGS (12)
  1. PANHEMATIN [Suspect]
     Indication: PORPHYRIA ACUTE
     Dosage: 40 MG; QD; IV
     Route: 042
     Dates: start: 20040726, end: 20040731
  2. PANHEMATIN [Suspect]
  3. ALBUMIN (HUMAN) [Suspect]
     Indication: PORPHYRIA ACUTE
     Dosage: 5 ML, IV
     Route: 042
     Dates: start: 20040726, end: 20040731
  4. ALBUMIN (HUMAN) [Suspect]
  5. FOSAMAX [Concomitant]
  6. ALDACTONE [Concomitant]
  7. KYTRIL [Concomitant]
  8. MAXALT [Concomitant]
  9. AMBIEN [Concomitant]
  10. LEXAPRO [Concomitant]
  11. PROTONIX [Concomitant]
  12. ZOFRAN [Concomitant]

REACTIONS (3)
  - BACTERIAL SEPSIS [None]
  - CENTRAL LINE INFECTION [None]
  - STENOTROPHOMONAS INFECTION [None]
